FAERS Safety Report 18657007 (Version 1)
Quarter: 2020Q4

REPORT INFORMATION
  Report Type: Spontaneous
  Country: DE (occurrence: DE)
  Receive Date: 20201224
  Receipt Date: 20201224
  Transmission Date: 20210114
  Serious: Yes (Other)
  Sender: FDA-Public Use
  Company Number: DE-AUROBINDO-AUR-APL-2020-062398

PATIENT
  Age: 1 Day
  Sex: Male
  Weight: 2.48 kg

DRUGS (7)
  1. CANDESARTAN. [Concomitant]
     Active Substance: CANDESARTAN
     Indication: HYPERTENSION
     Dosage: 4 MILLIGRAM, ONCE A DAY
     Route: 065
     Dates: start: 20190917, end: 20200620
  2. L-THYROXIN [Concomitant]
     Active Substance: LEVOTHYROXINE SODIUM
     Indication: HYPOTHYROIDISM
     Dosage: 100 MICROGRAM, ONCE A DAY
     Route: 064
     Dates: start: 20190917, end: 20200620
  3. INFLUENZA VACCIN [Concomitant]
     Active Substance: INFLUENZA VIRUS VACCINE
     Indication: IMMUNISATION
     Dosage: UNK
     Route: 064
  4. QUETIAPINE. [Suspect]
     Active Substance: QUETIAPINE
     Indication: SCHIZOPHRENIA
     Dosage: 350 [MG/D ]/ VARYING DOSAGE BETWEEN 150 AND 350MG DAILY DEPENDING ON SYMPTOMS
     Route: 064
     Dates: start: 20190917, end: 20200620
  5. CURATODERM [Concomitant]
     Indication: PSORIASIS
     Dosage: UNK
     Route: 064
  6. CETIRIZINE [Concomitant]
     Active Substance: CETIRIZINE HYDROCHLORIDE
     Indication: HYPERSENSITIVITY
     Dosage: UNK
     Route: 065
  7. DAIVOBET [Concomitant]
     Active Substance: BETAMETHASONE DIPROPIONATE\CALCIPOTRIENE
     Indication: PSORIASIS
     Dosage: UNK
     Route: 064
     Dates: start: 20191011, end: 20191024

REACTIONS (6)
  - Foetal exposure during pregnancy [Unknown]
  - Temperature regulation disorder [Recovered/Resolved]
  - Infantile apnoea [Recovered/Resolved]
  - Small for dates baby [Recovered/Resolved]
  - Bradycardia neonatal [Recovered/Resolved]
  - Selective eating disorder [Recovered/Resolved]

NARRATIVE: CASE EVENT DATE: 20200620
